FAERS Safety Report 8856018 (Version 1)
Quarter: 2012Q4

REPORT INFORMATION
  Report Type: 
  Country: US (occurrence: US)
  Receive Date: 20121023
  Receipt Date: 20121023
  Transmission Date: 20130627
  Serious: No
  Sender: FDA-Public Use
  Company Number: US-AMGEN-USASP2012058433

PATIENT
  Age: 73 Year
  Sex: Female
  Weight: 83.9 kg

DRUGS (12)
  1. ENBREL [Suspect]
     Indication: PRODUCT USED FOR UNKNOWN INDICATION
     Dosage: 50 mg, qwk
     Route: 058
  2. ARANESP [Concomitant]
     Dosage: UNK
  3. MULTIVITAMINS WITH FLUORIDE        /02270601/ [Concomitant]
     Dosage: UNK, Chewable
  4. MIRAPEX [Concomitant]
     Dosage: UNK
  5. METHOTREXATE [Concomitant]
     Dosage: UNK
  6. FOLIC ACID [Concomitant]
     Dosage: UNK
  7. AMLODIPINE [Concomitant]
     Dosage: UNK
  8. ATENOLOL [Concomitant]
     Dosage: UNK
  9. BUPROPION [Concomitant]
     Dosage: UNK
  10. DIOVAN HCT [Concomitant]
     Dosage: 320-25 mg, UNK
  11. EFFEXOR [Concomitant]
     Dosage: UNK
  12. ZOCOR [Concomitant]
     Dosage: UNK

REACTIONS (2)
  - Musculoskeletal stiffness [Unknown]
  - Pain in extremity [Unknown]
